FAERS Safety Report 8349797 (Version 2)
Quarter: 2012Q4

REPORT INFORMATION
  Report Type: 
  Country: US (occurrence: US)
  Receive Date: 20120123
  Receipt Date: 20120919
  Transmission Date: 20130627
  Serious: Yes (Other)
  Sender: FDA-Public Use
  Company Number: US-ASTRAZENECA-2011SE70949

PATIENT
  Age: 64 Year
  Sex: Female
  Weight: 113.4 kg

DRUGS (5)
  1. SEROQUEL [Suspect]
     Indication: SLEEP DISORDER
     Route: 048
     Dates: start: 2009
  2. SEROQUEL [Suspect]
     Indication: SLEEP DISORDER
     Route: 048
  3. SEROQUEL [Suspect]
     Indication: SLEEP DISORDER
     Route: 048
  4. CYMBALTA [Concomitant]
     Indication: DEPRESSION
  5. DETROL LA [Concomitant]
     Indication: URINARY INCONTINENCE

REACTIONS (12)
  - Road traffic accident [Unknown]
  - Convulsion [Unknown]
  - Insomnia [Unknown]
  - Tachyphrenia [Unknown]
  - Malaise [Unknown]
  - Malaise [Unknown]
  - Back pain [Unknown]
  - Insomnia [Unknown]
  - Joint dislocation [Unknown]
  - Arthritis [Unknown]
  - Off label use [Unknown]
  - Drug dose omission [Unknown]
